FAERS Safety Report 10261855 (Version 1)
Quarter: 2014Q2

REPORT INFORMATION
  Report Type: Spontaneous
  Country: US (occurrence: US)
  Receive Date: 20140626
  Receipt Date: 20140626
  Transmission Date: 20141212
  Serious: No
  Sender: FDA-Public Use
  Company Number: US-TEVA-490198USA

PATIENT
  Age: 61 Year
  Sex: Male
  Weight: 88.53 kg

DRUGS (1)
  1. NUVIGIL [Suspect]
     Indication: SLEEP APNOEA SYNDROME
     Route: 048
     Dates: start: 20140618

REACTIONS (4)
  - Adverse event [Not Recovered/Not Resolved]
  - Dysphagia [Not Recovered/Not Resolved]
  - Cardiac disorder [Not Recovered/Not Resolved]
  - Cardiovascular disorder [Not Recovered/Not Resolved]
